FAERS Safety Report 6523412-9 (Version None)
Quarter: 2009Q4

REPORT INFORMATION
  Report Type: 
  Country: None (occurrence: None)
  Receive Date: 20091231
  Receipt Date: 20091226
  Transmission Date: 20100525
  Serious: Yes (Other)
  Sender: FDA-Public Use
  Company Number: JP-ASTRAZENECA-2009SE28114

PATIENT
  Age: 20701 Day
  Sex: Female
  Weight: 48 kg

DRUGS (3)
  1. CRESTOR [Suspect]
     Indication: DYSLIPIDAEMIA
     Route: 048
     Dates: start: 20090903, end: 20090905
  2. ALLELOCK [Concomitant]
     Indication: RHINITIS ALLERGIC
     Route: 048
     Dates: start: 20090903, end: 20091030
  3. CELESTAMINE TAB [Concomitant]
     Indication: RHINITIS ALLERGIC
     Route: 048
     Dates: start: 20090420, end: 20090902

REACTIONS (2)
  - HYPOAESTHESIA [None]
  - MYALGIA [None]
